FAERS Safety Report 9902896 (Version 1)
Quarter: 2014Q1

REPORT INFORMATION
  Report Type: Spontaneous
  Country: US (occurrence: US)
  Receive Date: 20140217
  Receipt Date: 20140217
  Transmission Date: 20141002
  Serious: Yes (Hospitalization, Other)
  Sender: FDA-Public Use
  Company Number: CHPA2014US002591

PATIENT
  Age: 22 Year
  Sex: Female

DRUGS (1)
  1. ACETAMINOPHEN (PARACETAMOL) [Suspect]
     Indication: TOOTHACHE
     Dosage: 6 G, QD
     Route: 048

REACTIONS (11)
  - Acute hepatic failure [Recovered/Resolved]
  - Graft versus host disease in liver [Recovered/Resolved]
  - Hepatic encephalopathy [Recovered/Resolved]
  - Thrombocytopenia [Recovered/Resolved]
  - Haemolytic anaemia [Recovered/Resolved]
  - General physical health deterioration [Recovered/Resolved]
  - Somnolence [Recovered/Resolved]
  - Confusional state [Recovered/Resolved]
  - Abdominal pain upper [Recovered/Resolved]
  - Accidental overdose [Unknown]
  - Exposure during pregnancy [Unknown]
